FAERS Safety Report 10305373 (Version 1)
Quarter: 2014Q3

REPORT INFORMATION
  Report Type: Spontaneous
  Country: US (occurrence: None)
  Receive Date: 20140711
  Receipt Date: 20140711
  Transmission Date: 20150326
  Serious: Yes (Hospitalization)
  Sender: FDA-Public Use
  Company Number: None

PATIENT
  Age: 67 Year
  Sex: Female
  Weight: 68 kg

DRUGS (2)
  1. BENDAMUSTINE HYDROCHLORIDE [Suspect]
     Active Substance: BENDAMUSTINE HYDROCHLORIDE
     Dates: end: 20140703
  2. RITUXIMAB (MOAB C2B8 ANTI CD20, CHIMERIC) [Suspect]
     Active Substance: RITUXIMAB
     Dates: end: 20140701

REACTIONS (6)
  - Febrile neutropenia [None]
  - Blood pressure decreased [None]
  - Asthenia [None]
  - White blood cell count decreased [None]
  - Platelet count abnormal [None]
  - Haemoglobin abnormal [None]

NARRATIVE: CASE EVENT DATE: 20140709
